FAERS Safety Report 12621472 (Version 1)
Quarter: 2016Q3

REPORT INFORMATION
  Report Type: Spontaneous
  Country: IN (occurrence: IN)
  Receive Date: 20160804
  Receipt Date: 20160804
  Transmission Date: 20161109
  Serious: Yes (Other)
  Sender: FDA-Public Use
  Company Number: IN-SA-2016SA137634

PATIENT
  Age: 16 Year
  Sex: Female

DRUGS (1)
  1. RIFAMPICIN [Suspect]
     Active Substance: RIFAMPIN
     Indication: JOINT TUBERCULOSIS
     Route: 065

REACTIONS (18)
  - Blood phosphorus decreased [Unknown]
  - Trousseau^s sign [Unknown]
  - Condition aggravated [Unknown]
  - Hyperparathyroidism secondary [Unknown]
  - Urine calcium decreased [Unknown]
  - Hypocalcaemic seizure [Unknown]
  - Groin pain [Unknown]
  - Hypocalcaemia [Unknown]
  - Chvostek^s sign [Unknown]
  - X-ray of pelvis and hip abnormal [Unknown]
  - Pain [Unknown]
  - Abasia [Unknown]
  - Electrocardiogram QT prolonged [Unknown]
  - Vitamin D deficiency [Unknown]
  - Calcium ionised decreased [Unknown]
  - Femoral neck fracture [Unknown]
  - Generalised tonic-clonic seizure [Unknown]
  - Blood alkaline phosphatase increased [Unknown]
